FAERS Safety Report 9405059 (Version 1)
Quarter: 2013Q3

REPORT INFORMATION
  Report Type: Report from Study
  Country: GB (occurrence: GB)
  Receive Date: 20130717
  Receipt Date: 20130717
  Transmission Date: 20140515
  Serious: Yes (Hospitalization)
  Sender: FDA-Public Use
  Company Number: GB-ROCHE-1244885

PATIENT
  Age: 79 Year
  Sex: Female
  Weight: 87.9 kg

DRUGS (15)
  1. METHOXY POLYETHYLENE GLYCOL-EPOETIN BETA [Suspect]
     Indication: NEPHROGENIC ANAEMIA
     Route: 058
     Dates: start: 20100726
  2. METHOXY POLYETHYLENE GLYCOL-EPOETIN BETA [Suspect]
     Dosage: DATE OF LAST DOSE PRIOR TO SAE : 23/MAY/2013.
     Route: 058
  3. INSULIN NOVOMIX [Concomitant]
     Route: 065
     Dates: start: 20111118
  4. CITALOPRAM [Concomitant]
     Route: 065
  5. SEVELAMER [Concomitant]
     Route: 065
     Dates: start: 20120105
  6. CODEINE PHOSPHATE [Concomitant]
     Route: 065
     Dates: start: 20111111
  7. SIMVASTATIN [Concomitant]
     Route: 065
     Dates: start: 20061115
  8. OMEPRAZOLE [Concomitant]
     Route: 065
     Dates: start: 20061115
  9. RAMIPRIL [Concomitant]
     Route: 065
     Dates: start: 20100202
  10. SENNA [Concomitant]
     Route: 065
     Dates: start: 20111211
  11. PARACETAMOL [Concomitant]
     Route: 065
     Dates: start: 20111211
  12. DOXAZOSIN [Concomitant]
     Route: 065
     Dates: start: 20120101
  13. FUROSEMIDE [Concomitant]
     Route: 065
     Dates: start: 20040217
  14. AMLODIPINE [Concomitant]
     Route: 065
     Dates: start: 20050512
  15. LEVOTHYROXINE [Concomitant]
     Route: 065
     Dates: start: 20040217

REACTIONS (1)
  - Transient ischaemic attack [Recovered/Resolved with Sequelae]
